FAERS Safety Report 13956720 (Version 1)
Quarter: 2017Q3

REPORT INFORMATION
  Report Type: Spontaneous
  Country: JP (occurrence: JP)
  Receive Date: 20170911
  Receipt Date: 20170911
  Transmission Date: 20171128
  Serious: Yes (Other)
  Sender: FDA-Public Use
  Company Number: JP-PFIZER INC-2017377526

PATIENT
  Age: 28 Year
  Sex: Female

DRUGS (6)
  1. RITODRINE [Suspect]
     Active Substance: RITODRINE
     Indication: PREMATURE LABOUR
     Dosage: 100 UG/MIN
     Route: 042
  2. SUCCINYLCHOLINE [Suspect]
     Active Substance: SUCCINYLCHOLINE
     Indication: INDUCTION OF ANAESTHESIA
     Dosage: 120 MG, UNK
     Route: 042
  3. ATROPINE SULFATE. [Suspect]
     Active Substance: ATROPINE SULFATE
     Dosage: 0.5 MG, UNK
     Route: 030
  4. RANITIDINE HYDROCHLORIDE. [Suspect]
     Active Substance: RANITIDINE HYDROCHLORIDE
     Dosage: 50 MG, UNK
     Route: 030
  5. KETAMINE HCL [Suspect]
     Active Substance: KETAMINE HYDROCHLORIDE
     Indication: INDUCTION OF ANAESTHESIA
     Dosage: 60 MG, UNK
     Route: 042
  6. MAGNESIUM SULFATE. [Suspect]
     Active Substance: MAGNESIUM SULFATE
     Dosage: 1759 G, UNK
     Route: 042

REACTIONS (3)
  - Electrocardiogram T wave amplitude increased [Recovered/Resolved]
  - Electrocardiogram QRS complex prolonged [Recovered/Resolved]
  - Hyperkalaemia [Unknown]
